FAERS Safety Report 4994014-0 (Version None)
Quarter: 2006Q2

REPORT INFORMATION
  Report Type: 
  Country: None (occurrence: None)
  Receive Date: 20060503
  Receipt Date: 20060421
  Transmission Date: 20061013
  Serious: Yes (Hospitalization)
  Sender: FDA-Public Use
  Company Number: 222185

PATIENT
  Age: 63 Year
  Sex: Female

DRUGS (6)
  1. MABTHERA (RITUXIMAB)CONC FOR SOLUTION FOR INFUSION [Suspect]
     Indication: RHEUMATOID ARTHRITIS
     Dosage: 1000 MG, INTRAVENOUS
     Route: 042
     Dates: start: 20060131, end: 20060215
  2. METHOTREXATE [Concomitant]
  3. ANTIFUNGAL AGENT NOS (ANTIFUNGAL AGENT NOS) [Concomitant]
  4. PREDNISOLONE [Concomitant]
  5. OMEPRAZOLE [Concomitant]
  6. ANTIFUNGAL AGENT NOS (ANTIFUNGAL AGENT NOS) [Concomitant]

REACTIONS (1)
  - ASTHMA [None]
